FAERS Safety Report 7576212-5 (Version None)
Quarter: 2011Q2

REPORT INFORMATION
  Report Type: 
  Country: None (occurrence: None)
  Receive Date: 20110628
  Receipt Date: 20110110
  Transmission Date: 20111010
  Serious: Yes (Hospitalization, Other)
  Sender: FDA-Public Use
  Company Number: US-BAYER-201039359NA

PATIENT
  Age: 16 Year
  Sex: Female
  Weight: 63.039 kg

DRUGS (5)
  1. YASMIN [Suspect]
     Indication: ACNE
     Dates: start: 20020224, end: 20041026
  2. TYLENOL W/ CODEINE [Concomitant]
  3. MUSCLE RELAXANTS [Concomitant]
  4. EXCEDRIN (MIGRAINE) [Concomitant]
  5. PHENERGAN HCL [Concomitant]

REACTIONS (1)
  - CEREBROVASCULAR ACCIDENT [None]
